FAERS Safety Report 10159807 (Version 1)
Quarter: 2014Q2

REPORT INFORMATION
  Report Type: Spontaneous
  Country: US (occurrence: US)
  Receive Date: 20140508
  Receipt Date: 20140508
  Transmission Date: 20141212
  Serious: No
  Sender: FDA-Public Use
  Company Number: US-GLAXOSMITHKLINE-A1031576A

PATIENT
  Age: 67 Year
  Sex: Female

DRUGS (17)
  1. TYKERB [Suspect]
     Indication: BREAST CANCER
     Dosage: 1000MG SEE DOSAGE TEXT
     Route: 048
     Dates: start: 20130101
  2. XELODA [Concomitant]
     Route: 065
  3. OXYCODONE [Concomitant]
     Route: 065
  4. MULTIVITAMIN [Concomitant]
     Route: 065
  5. SENNA [Concomitant]
     Route: 065
  6. REQUIP [Concomitant]
     Route: 048
  7. DETROL LA [Concomitant]
     Route: 065
  8. LORAZEPAM [Concomitant]
     Route: 065
  9. GENTEAL [Concomitant]
     Route: 065
  10. FLONASE [Concomitant]
     Route: 045
  11. CYMBALTA [Concomitant]
     Route: 065
  12. AMANTADINE [Concomitant]
     Route: 065
  13. B COMPLEX [Concomitant]
     Route: 065
  14. TYLENOL EXTRA STRENGTH [Concomitant]
     Route: 065
  15. ENTACAPONE [Concomitant]
     Route: 065
  16. LEVODOPA [Concomitant]
     Route: 065
  17. SINEMET [Concomitant]
     Route: 065

REACTIONS (3)
  - Palmar-plantar erythrodysaesthesia syndrome [Unknown]
  - Blister [Unknown]
  - Skin discolouration [Unknown]
